FAERS Safety Report 7470983-4 (Version None)
Quarter: 2011Q2

REPORT INFORMATION
  Report Type: 
  Country: None (occurrence: None)
  Receive Date: 20110510
  Receipt Date: 20110508
  Transmission Date: 20111010
  Serious: No
  Sender: FDA-Public Use
  Company Number: US-PFIZER INC-2011098959

PATIENT
  Sex: Male

DRUGS (1)
  1. CHANTIX [Suspect]
     Dosage: 1 MG, UNK
     Route: 048
     Dates: start: 20110419, end: 20110426

REACTIONS (2)
  - NAUSEA [None]
  - VOMITING [None]
